FAERS Safety Report 8151363-5 (Version None)
Quarter: 2012Q1

REPORT INFORMATION
  Report Type: 
  Country: None (occurrence: None)
  Receive Date: 20120220
  Receipt Date: 20120209
  Transmission Date: 20120608
  Serious: Yes (Other)
  Sender: FDA-Public Use
  Company Number: US-BAYER-200829340NA

PATIENT
  Age: 48 Year
  Sex: Female
  Weight: 132 kg

DRUGS (60)
  1. GADOLINIUM IN UNSPECIFIED DRUG [Suspect]
     Indication: NUCLEAR MAGNETIC RESONANCE IMAGING
     Dosage: UNK UNK, ONCE
     Dates: start: 20031204, end: 20031204
  2. METOPROLOL TARTRATE [Concomitant]
  3. ALTACE [Concomitant]
  4. NEURONTIN [Concomitant]
  5. PROTONIX [Concomitant]
  6. NOVOLIN [INSULIN] [Concomitant]
  7. NOVOLOG [Concomitant]
  8. METOLAZONE [Concomitant]
  9. VITAMIN TAB [Concomitant]
  10. HYZAAR [Concomitant]
  11. AVALIDE [Concomitant]
  12. COREG [Concomitant]
  13. MULTIHANCE [Suspect]
     Indication: NUCLEAR MAGNETIC RESONANCE IMAGING
  14. LEVOTHYROXINE SODIUM [Concomitant]
  15. PROTONIX [Concomitant]
  16. SEROQUEL [Concomitant]
  17. VAGIFEM [Concomitant]
  18. EFFEXOR XR [Concomitant]
  19. METFORMIN HCL [Concomitant]
  20. OPTIMARK [Suspect]
     Indication: NUCLEAR MAGNETIC RESONANCE IMAGING
  21. XOPENEX [Concomitant]
  22. ALDACTONE [POTASSIUM CANRENOATE] [Concomitant]
  23. VICODIN [Concomitant]
  24. TEMAZEPAM [Concomitant]
  25. COUMADIN [Concomitant]
  26. POTASSIUM CHLORIDE [Concomitant]
  27. SILDENAFIL CITRATE [Concomitant]
  28. DIGOXIN [Concomitant]
  29. XANAX [Concomitant]
  30. PROHANCE [Suspect]
     Indication: NUCLEAR MAGNETIC RESONANCE IMAGING
  31. SINGULAIR [Concomitant]
  32. PREDNISONE [Concomitant]
  33. ONE-A-DAY [MINERALS NOS,VITAMINS NOS] [Concomitant]
  34. TYLENOL W/ CODEINE NO. 4 [Concomitant]
  35. SPIRONOLACTONE [Concomitant]
  36. METOPROLOL TARTRATE [Concomitant]
  37. MAGNEVIST [Suspect]
     Indication: CARDIAC IMAGING PROCEDURE
     Dosage: UNK
     Dates: start: 20040823, end: 20040823
  38. ADVAIR DISKUS 100/50 [Concomitant]
  39. NEURONTIN [Concomitant]
  40. IMITREX [Concomitant]
  41. LASIX [Concomitant]
  42. IMITREX [Concomitant]
  43. OXYCONTIN [Concomitant]
  44. ZOLOFT [Concomitant]
  45. FLECAINIDE ACETATE [Concomitant]
  46. OMNISCAN [Suspect]
     Indication: NUCLEAR MAGNETIC RESONANCE IMAGING
     Dosage: 20 ML, ONCE
     Dates: start: 20000816, end: 20000816
  47. ELAVIL [Concomitant]
  48. LIDODERM [Concomitant]
  49. AMITRIPTYLINE HCL [Concomitant]
  50. PHENERGAN [Concomitant]
  51. MAGNESIUM OXIDE [Concomitant]
  52. LIPITOR [Concomitant]
  53. PLAVIX [Concomitant]
  54. LASIX [Concomitant]
  55. MEXILETINE [Concomitant]
  56. AMBIEN [Concomitant]
  57. SINGULAIR [Concomitant]
  58. AMIODARONE HCL [Concomitant]
  59. HYDROCODONE [Concomitant]
  60. JANUVIA [Concomitant]

REACTIONS (17)
  - INJURY [None]
  - PAIN [None]
  - ANXIETY [None]
  - PAIN IN EXTREMITY [None]
  - MUSCLE SPASMS [None]
  - MUSCULOSKELETAL STIFFNESS [None]
  - RASH [None]
  - SKIN HYPOPIGMENTATION [None]
  - LOWER EXTREMITY MASS [None]
  - NEPHROGENIC SYSTEMIC FIBROSIS [None]
  - SKIN DISCOLOURATION [None]
  - GENERAL PHYSICAL HEALTH DETERIORATION [None]
  - EMOTIONAL DISTRESS [None]
  - MOBILITY DECREASED [None]
  - PARAESTHESIA [None]
  - JOINT SWELLING [None]
  - SKIN ULCER [None]
